FAERS Safety Report 9323768 (Version 1)
Quarter: 2013Q2

REPORT INFORMATION
  Report Type: Spontaneous
  Country: JP (occurrence: JP)
  Receive Date: 20130603
  Receipt Date: 20130603
  Transmission Date: 20140414
  Serious: Yes (Hospitalization)
  Sender: FDA-Public Use
  Company Number: JP-ELI_LILLY_AND_COMPANY-JP201304006997

PATIENT
  Age: 75 Year
  Sex: Female

DRUGS (3)
  1. FORTEO [Suspect]
     Dosage: UNK
     Route: 058
     Dates: start: 20130412, end: 201304
  2. FORTEO [Suspect]
     Dosage: UNK
     Route: 058
     Dates: start: 201305
  3. INSULIN [Concomitant]
     Dosage: UNK
     Route: 058

REACTIONS (3)
  - Spinal fracture [Unknown]
  - Dizziness [Unknown]
  - Vomiting [Unknown]
